FAERS Safety Report 21283289 (Version 1)
Quarter: 2022Q3

REPORT INFORMATION
  Report Type: Spontaneous
  Country: CN (occurrence: CN)
  Receive Date: 20220901
  Receipt Date: 20220901
  Transmission Date: 20221027
  Serious: Yes (Other)
  Sender: FDA-Public Use
  Company Number: None

PATIENT
  Age: 32 Year
  Sex: Female
  Weight: 68 kg

DRUGS (4)
  1. CYCLOPHOSPHAMIDE [Suspect]
     Active Substance: CYCLOPHOSPHAMIDE
     Indication: Breast cancer female
     Dosage: DOSAGE FORM- INJECTION, TC REGIMEN- 0.95 G, QD (DILUTED WITH 0.9% SODIUM CHLORIDE 100 ML)
     Route: 041
     Dates: start: 20220714, end: 20220714
  2. SODIUM CHLORIDE [Suspect]
     Active Substance: SODIUM CHLORIDE
     Indication: Medication dilution
     Dosage: DOSAGE FORM- SOLUTION, TC REGIMEN- 100 ML, QD (DILUTED WITH CYCLOPHOSPHAMIDE 0.95 G)
     Route: 041
     Dates: start: 20220714, end: 20220714
  3. SODIUM CHLORIDE [Suspect]
     Active Substance: SODIUM CHLORIDE
     Dosage: DOSAGE FORM- SOLUTION, TC REGIMEN- 500 ML, QD (DILUTED WITH DOCETAXEL 120 MG)
     Route: 041
     Dates: start: 20220714, end: 20220714
  4. DOCETAXEL [Suspect]
     Active Substance: DOCETAXEL
     Indication: Breast cancer female
     Dosage: TC REGIMEN- 120 MG, QD (DILUTED WITH 0.9% SODIUM CHLORIDE 500 ML)
     Route: 041
     Dates: start: 20220714, end: 20220714

REACTIONS (1)
  - Myelosuppression [Recovering/Resolving]

NARRATIVE: CASE EVENT DATE: 20220717
